FAERS Safety Report 23162468 (Version 1)
Quarter: 2023Q4

REPORT INFORMATION
  Report Type: Spontaneous
  Country: PT (occurrence: PT)
  Receive Date: 20231109
  Receipt Date: 20231109
  Transmission Date: 20240109
  Serious: Yes (Hospitalization)
  Sender: FDA-Public Use
  Company Number: PT-INFARMED-B202310-577

PATIENT
  Age: 54 Year
  Sex: Male

DRUGS (12)
  1. ACETAMINOPHEN [Suspect]
     Active Substance: ACETAMINOPHEN
     Indication: Analgesic therapy
     Dosage: 500 MILLIGRAM,SOS
     Route: 042
     Dates: start: 20231018, end: 20231018
  2. MEROPENEM [Suspect]
     Active Substance: MEROPENEM
     Indication: Leg amputation
     Dosage: UNK,8/8H
     Route: 042
     Dates: start: 20231017
  3. METAMIZOL [Suspect]
     Active Substance: METAMIZOLE SODIUM
     Indication: Analgesic therapy
     Dosage: UNK,8/8H
     Route: 042
     Dates: start: 20231017, end: 20231019
  4. KANAKION MM [Concomitant]
     Indication: Product used for unknown indication
     Dosage: 10 MILLIGRAM, ONCE A DAY
     Route: 042
  5. INSULIN GLARGINE [Concomitant]
     Active Substance: INSULIN GLARGINE
     Indication: Product used for unknown indication
     Dosage: UNK
     Route: 058
  6. METOCLOPRAMIDE HYDROCHLORIDE [Concomitant]
     Active Substance: METOCLOPRAMIDE HYDROCHLORIDE
     Indication: Product used for unknown indication
     Dosage: 10 MILLIGRAM,ANTES DAS REFEI??ES
     Route: 048
  7. TIAMINA LABESFAL [Concomitant]
     Indication: Product used for unknown indication
     Dosage: 100 MILLIGRAM, ONCE A DAY
     Route: 048
  8. TRAMADOL [Concomitant]
     Active Substance: TRAMADOL\TRAMADOL HYDROCHLORIDE
     Indication: Product used for unknown indication
     Dosage: 100 MILLIGRAM
     Route: 048
  9. VANCOMYCIN [Concomitant]
     Active Substance: VANCOMYCIN
     Indication: Product used for unknown indication
     Dosage: 1000 MILLIGRAM
     Route: 042
  10. POTASSIUM CHLORIDE [Concomitant]
     Active Substance: POTASSIUM CHLORIDE
     Indication: Product used for unknown indication
     Dosage: 80 MILLIEQUIVALENT
     Route: 042
  11. CAPTOPRIL [Concomitant]
     Active Substance: CAPTOPRIL
     Indication: Product used for unknown indication
     Dosage: UNK
     Route: 048
  12. TIAPRIDE HYDROCHLORIDE [Concomitant]
     Active Substance: TIAPRIDE HYDROCHLORIDE
     Indication: Product used for unknown indication
     Dosage: 100 MILLIGRAM, FOUR TIMES/DAY
     Route: 065

REACTIONS (1)
  - Hepatic enzyme increased [Not Recovered/Not Resolved]

NARRATIVE: CASE EVENT DATE: 20231018
